FAERS Safety Report 6864999-6 (Version None)
Quarter: 2010Q3

REPORT INFORMATION
  Report Type: 
  Country: None (occurrence: None)
  Receive Date: 20100721
  Receipt Date: 20080410
  Transmission Date: 20110219
  Serious: No
  Sender: FDA-Public Use
  Company Number: US-PFIZER INC-2008032595

PATIENT
  Sex: Female
  Weight: 65.9 kg

DRUGS (15)
  1. CHANTIX [Suspect]
     Indication: SMOKING CESSATION THERAPY
     Dates: start: 20080201
  2. PAXIL [Concomitant]
  3. XANAX [Concomitant]
  4. MULTI-VITAMINS [Concomitant]
  5. VITAMIN D [Concomitant]
  6. CALCIUM [Concomitant]
  7. LISINOPRIL [Concomitant]
     Indication: HYPERTENSION
  8. CYCLOPAM TABLET [Concomitant]
  9. TRAZODONE HYDROCHLORIDE [Concomitant]
  10. TOPAMAX [Concomitant]
  11. MAGNESIUM OXIDE [Concomitant]
  12. VITAMIN B-12 [Concomitant]
  13. CYANOCOBALAMIN [Concomitant]
  14. FERROUS SULFATE TAB [Concomitant]
  15. STOOL SOFTENER [Concomitant]

REACTIONS (2)
  - DRUG INTOLERANCE [None]
  - NAUSEA [None]
